FAERS Safety Report 4280056-X (Version None)
Quarter: 2004Q1

REPORT INFORMATION
  Report Type: 
  Country: None (occurrence: None)
  Receive Date: 20040121
  Receipt Date: 20040108
  Transmission Date: 20041129
  Serious: Yes (Hospitalization)
  Sender: FDA-Public Use
  Company Number: 04P-144-0246908-00

PATIENT
  Age: 46 Year
  Sex: Female

DRUGS (2)
  1. HYDROCHLOROTHIAZIDE [Suspect]
     Indication: HYPERTENSION
     Dates: start: 19990101, end: 19990101
  2. ENALAPRIL MALEATE [Concomitant]

REACTIONS (15)
  - ANAPHYLACTIC REACTION [None]
  - ASTHENIA [None]
  - BLOOD PRESSURE DIASTOLIC DECREASED [None]
  - CARDIAC MURMUR [None]
  - CREPITATIONS [None]
  - CYANOSIS [None]
  - CYANOSIS CENTRAL [None]
  - DIARRHOEA [None]
  - DYSPNOEA [None]
  - FLUSHING [None]
  - LUNG INFILTRATION [None]
  - PYREXIA [None]
  - SINUS TACHYCARDIA [None]
  - SOMNOLENCE [None]
  - TACHYPNOEA [None]
